FAERS Safety Report 11809367 (Version 33)
Quarter: 2019Q4

REPORT INFORMATION
  Report Type: Report from Study
  Country: CA (occurrence: CA)
  Receive Date: 20151207
  Receipt Date: 20191030
  Transmission Date: 20200122
  Serious: Yes (Hospitalization, Other)
  Sender: FDA-Public Use
  Company Number: CA-ROCHE-1630790

PATIENT
  Age: 79 Year
  Sex: Female

DRUGS (19)
  1. TOVIAZ [Concomitant]
     Active Substance: FESOTERODINE FUMARATE
  2. SANDOL P [Concomitant]
  3. ACTEMRA [Suspect]
     Active Substance: TOCILIZUMAB
     Indication: VASCULITIS
     Route: 042
     Dates: start: 20151127
  4. AMLODIPINE [Concomitant]
     Active Substance: AMLODIPINE BESYLATE
  5. PREDNISONE. [Concomitant]
     Active Substance: PREDNISONE
  6. LYRICA [Concomitant]
     Active Substance: PREGABALIN
  7. NITRO [GLYCERYL TRINITRATE] [Concomitant]
     Active Substance: NITROGLYCERIN
     Route: 065
  8. ACTEMRA [Suspect]
     Active Substance: TOCILIZUMAB
     Route: 042
     Dates: start: 20180911
  9. VISKEN [Concomitant]
     Active Substance: PINDOLOL
  10. RIVOTRIL [Concomitant]
     Active Substance: CLONAZEPAM
  11. ASAPHEN [Concomitant]
     Active Substance: ASPIRIN
  12. OMEPRAZOLE. [Concomitant]
     Active Substance: OMEPRAZOLE
  13. LIPITOR [Concomitant]
     Active Substance: ATORVASTATIN CALCIUM
  14. METHOTREXATE. [Concomitant]
     Active Substance: METHOTREXATE
  15. ELAVIL [Concomitant]
     Active Substance: AMITRIPTYLINE HYDROCHLORIDE
  16. FOLIC ACID. [Concomitant]
     Active Substance: FOLIC ACID
  17. ACTEMRA [Suspect]
     Active Substance: TOCILIZUMAB
     Indication: TEMPORAL ARTERITIS
     Route: 042
     Dates: start: 20150612
  18. ACTEMRA [Suspect]
     Active Substance: TOCILIZUMAB
     Route: 042
     Dates: start: 20180519
  19. FIORINAL [Concomitant]
     Active Substance: ASPIRIN\BUTALBITAL\CAFFEINE

REACTIONS (32)
  - Intentional product use issue [Unknown]
  - Poor peripheral circulation [Not Recovered/Not Resolved]
  - Cerebrovascular accident [Unknown]
  - Infusion related reaction [Unknown]
  - Mean cell haemoglobin increased [Unknown]
  - Mean cell volume increased [Unknown]
  - Heart rate increased [Unknown]
  - Haematocrit decreased [Unknown]
  - White blood cell count increased [Unknown]
  - Headache [Unknown]
  - Blood pressure systolic abnormal [Unknown]
  - Heart rate decreased [Unknown]
  - Transient ischaemic attack [Unknown]
  - Musculoskeletal stiffness [Not Recovered/Not Resolved]
  - Red blood cell count decreased [Unknown]
  - Haemoglobin decreased [Unknown]
  - Monocyte count decreased [Unknown]
  - Blood pressure systolic increased [Unknown]
  - White coat hypertension [Unknown]
  - Enterocolitis haemorrhagic [Unknown]
  - Platelet count increased [Unknown]
  - Lymphocyte count decreased [Unknown]
  - Hypertension [Unknown]
  - Blood pressure diastolic decreased [Unknown]
  - Red cell distribution width increased [Unknown]
  - Off label use [Unknown]
  - Pain [Not Recovered/Not Resolved]
  - Gastroenteritis [Unknown]
  - Blood pressure increased [Recovering/Resolving]
  - Dyspnoea [Unknown]
  - Blood pressure systolic increased [Unknown]
  - Arthropathy [Unknown]

NARRATIVE: CASE EVENT DATE: 20150612
